FAERS Safety Report 11039572 (Version 1)
Quarter: 2015Q2

REPORT INFORMATION
  Report Type: Spontaneous
  Country: US (occurrence: US)
  Receive Date: 20150416
  Receipt Date: 20150416
  Transmission Date: 20150821
  Serious: No
  Sender: FDA-Public Use
  Company Number: US-GLAXOSMITHKLINE-US2015GSK051081

PATIENT
  Sex: Male

DRUGS (3)
  1. TAFINLAR [Suspect]
     Active Substance: DABRAFENIB MESYLATE
     Indication: MALIGNANT MELANOMA
     Dosage: 50 MG, U
     Dates: start: 20141103, end: 20150223
  2. MEKINIST [Suspect]
     Active Substance: TRAMETINIB DIMETHYL SULFOXIDE
     Indication: MALIGNANT MELANOMA
     Dosage: 2 MG, U
     Dates: start: 20141112, end: 20150223
  3. TAFINLAR [Suspect]
     Active Substance: DABRAFENIB MESYLATE
     Dosage: 50 MG, U
     Dates: start: 20150323

REACTIONS (9)
  - Chills [Unknown]
  - Dizziness [Unknown]
  - Dysgeusia [Unknown]
  - Vision blurred [Unknown]
  - Pain in extremity [Unknown]
  - Dry mouth [Unknown]
  - Fatigue [Unknown]
  - Depression [Unknown]
  - Burning sensation [Unknown]
